FAERS Safety Report 12161740 (Version 1)
Quarter: 2016Q1

REPORT INFORMATION
  Report Type: Spontaneous
  Country: US (occurrence: US)
  Receive Date: 20160309
  Receipt Date: 20160309
  Transmission Date: 20160526
  Serious: No
  Sender: FDA-Public Use
  Company Number: US-BRISTOL-MYERS SQUIBB COMPANY-BMS-2016-013507

PATIENT
  Sex: Female

DRUGS (2)
  1. ELIQUIS [Suspect]
     Active Substance: APIXABAN
     Indication: ATRIAL FIBRILLATION
     Dosage: 5 MG, BID
     Route: 065
  2. ELIQUIS [Suspect]
     Active Substance: APIXABAN
     Dosage: 2.5 MG, BID
     Route: 065

REACTIONS (8)
  - Haemoptysis [Unknown]
  - Hypoglycaemia [Unknown]
  - Nausea [Unknown]
  - Pollakiuria [Unknown]
  - Dysuria [Unknown]
  - Feeling cold [Unknown]
  - Diarrhoea [Unknown]
  - Constipation [Unknown]
